FAERS Safety Report 5814610-8 (Version None)
Quarter: 2008Q3

REPORT INFORMATION
  Report Type: 
  Country: None (occurrence: None)
  Receive Date: 20080718
  Receipt Date: 20071214
  Transmission Date: 20090109
  Serious: No
  Sender: FDA-Public Use
  Company Number: US-KINGPHARMUSA00001-K200701616

PATIENT

DRUGS (6)
  1. LEVOXYL [Suspect]
     Dosage: 25 MCG, UNK
     Dates: start: 20071101
  2. LEVOXYL [Suspect]
     Dosage: 50 MCG
     Route: 048
     Dates: start: 20070101, end: 20070101
  3. LEVOXYL [Suspect]
     Dosage: 50 MCG, 4 TIMES PER WEEK
     Route: 048
     Dates: start: 20070101
  4. LEVOXYL [Suspect]
     Dosage: 75 MCG, THREE DAYS PER WEEK
     Route: 048
     Dates: start: 20070101
  5. ASPIRIN [Concomitant]
     Dosage: 1 UNK, QD
  6. IBUPROFEN [Concomitant]
     Indication: PAIN
     Dosage: UNK, PRN

REACTIONS (6)
  - ARTHRALGIA [None]
  - DIARRHOEA [None]
  - DIZZINESS [None]
  - HEART RATE INCREASED [None]
  - HEAT RASH [None]
  - SKIN BURNING SENSATION [None]
